FAERS Safety Report 5880628-2 (Version None)
Quarter: 2008Q3

REPORT INFORMATION
  Report Type: 
  Country: None (occurrence: None)
  Receive Date: 20080911
  Receipt Date: 20080901
  Transmission Date: 20090109
  Serious: Yes (Death, Other)
  Sender: FDA-Public Use
  Company Number: 2008-00423

PATIENT
  Age: 62 Year
  Sex: Male
  Weight: 38 kg

DRUGS (25)
  1. VELCADE [Suspect]
     Indication: MULTIPLE MYELOMA
     Dosage: 1.60 MG,INTRAVENOUS; 1.30 MG, INTRAVENOUS
     Route: 042
     Dates: start: 20071019, end: 20071029
  2. VELCADE [Suspect]
     Indication: MULTIPLE MYELOMA
     Dosage: 1.60 MG,INTRAVENOUS; 1.30 MG, INTRAVENOUS
     Route: 042
     Dates: start: 20071119, end: 20071126
  3. DEXAMETHASONE TAB [Suspect]
     Indication: MULTIPLE MYELOMA
     Dosage: 20 MG, INTRAVENOUS
     Route: 042
     Dates: start: 20071019, end: 20071129
  4. MS CONTIN [Suspect]
     Indication: DRUG USE FOR UNKNOWN INDICATION
     Dosage: ORAL
     Route: 048
  5. FAMOTIDINE [Concomitant]
  6. VIT K CAP [Concomitant]
  7. ALOSENN (TARAXACUM OFFICINALE, ACHILLEA, SENNA LEAF, RUBIA ROOT TINCTU [Concomitant]
  8. NAUZELIN (DOMPERIDONE) [Concomitant]
  9. BIASAN (MENTHOL, GENTIAN, ZINGIBER OFFICINALE, ZANTHOXYIUM CLAVA-  HER [Concomitant]
  10. ALLOPURINOL [Concomitant]
  11. DIFLUCAN [Concomitant]
  12. MORPHINE [Concomitant]
  13. ESPO (EPOETIN ALFA) [Concomitant]
  14. FIRSTCIN (CEFOZOPRAN HYDROCHLORIDE) [Concomitant]
  15. FUNGUARD [Concomitant]
  16. MEROPEN (MEROPENEM) [Concomitant]
  17. ZOVIRAX [Concomitant]
  18. RED BLOOD CELLS [Concomitant]
  19. SULFAMETHOXAZOLE AND TRIMETHOPRIM [Concomitant]
  20. KAYEXALATE [Concomitant]
  21. SLOW-K [Concomitant]
  22. CALCIUM LACTATE (CALCIUM LACTATE) [Concomitant]
  23. HUMULIN R [Concomitant]
  24. POTASSIUM CHLORIDE [Concomitant]
  25. LASIX [Concomitant]

REACTIONS (9)
  - ASTHENIA [None]
  - BLOOD LACTATE DEHYDROGENASE INCREASED [None]
  - CARDIO-RESPIRATORY ARREST [None]
  - DISEASE PROGRESSION [None]
  - ENTEROCOCCAL INFECTION [None]
  - HAEMOGLOBIN DECREASED [None]
  - PLATELET COUNT DECREASED [None]
  - PYREXIA [None]
  - SEPSIS [None]
